FAERS Safety Report 7928824-4 (Version None)
Quarter: 2011Q4

REPORT INFORMATION
  Report Type: 
  Country: None (occurrence: None)
  Receive Date: 20111118
  Receipt Date: 20111114
  Transmission Date: 20120403
  Serious: Yes (Hospitalization)
  Sender: FDA-Public Use
  Company Number: US-CELGENEUS-163-21880-11112346

PATIENT
  Sex: Female
  Weight: 61.29 kg

DRUGS (9)
  1. PRILOSEC [Concomitant]
     Route: 065
  2. AMITRIPTYLINE HCL [Concomitant]
     Route: 065
  3. OXYCODONE HCL [Concomitant]
     Route: 065
  4. OXYCONTIN [Concomitant]
     Route: 065
  5. KEPPRA [Concomitant]
     Route: 065
  6. LIDOCAINE [Concomitant]
     Route: 065
  7. REVLIMID [Suspect]
     Indication: MULTIPLE MYELOMA
     Dosage: 2.5 MILLIGRAM
     Route: 048
     Dates: start: 20091012
  8. XANAX [Concomitant]
     Route: 065
  9. ZOMETA [Concomitant]
     Route: 065

REACTIONS (1)
  - CONVULSION [None]
